FAERS Safety Report 9879847 (Version 2)
Quarter: 2014Q2

REPORT INFORMATION
  Report Type: Spontaneous
  Country: IT (occurrence: IT)
  Receive Date: 20140206
  Receipt Date: 20140617
  Transmission Date: 20141212
  Serious: Yes (Hospitalization)
  Sender: FDA-Public Use
  Company Number: IT-MYLANLABS-2014S1002068

PATIENT
  Age: 59 Year
  Sex: Female

DRUGS (3)
  1. MIRTAZAPINE [Suspect]
     Indication: PARKINSON^S DISEASE
  2. VALIUM [Suspect]
     Indication: PRODUCT USED FOR UNKNOWN INDICATION
     Dosage: 5 GTT TOTAL
     Route: 048
     Dates: start: 20120912, end: 20120912
  3. TAVOR [Concomitant]
     Indication: PARKINSON^S DISEASE

REACTIONS (3)
  - Tremor [Recovering/Resolving]
  - Neurological symptom [Recovering/Resolving]
  - Labelled drug-drug interaction medication error [Recovering/Resolving]
